FAERS Safety Report 12930379 (Version 7)
Quarter: 2017Q2

REPORT INFORMATION
  Report Type: Report from Study
  Country: BR (occurrence: BR)
  Receive Date: 20161110
  Receipt Date: 20170403
  Transmission Date: 20170830
  Serious: Yes (Other)
  Sender: FDA-Public Use
  Company Number: BR-ALEXION PHARMACEUTICALS INC.-A201608066

PATIENT
  Age: 46 Year
  Sex: Male

DRUGS (3)
  1. SOLIRIS [Suspect]
     Active Substance: ECULIZUMAB
     Dosage: 900 MG, Q2W
     Route: 042
     Dates: start: 20151026
  2. SOLIRIS [Suspect]
     Active Substance: ECULIZUMAB
     Indication: PAROXYSMAL NOCTURNAL HAEMOGLOBINURIA
     Dosage: 600 MG, UNK
     Route: 042
     Dates: start: 20150928, end: 20151019
  3. SOLIRIS [Suspect]
     Active Substance: ECULIZUMAB
     Dosage: 900MG EVERY 10 DAYS
     Route: 042
     Dates: start: 20170126

REACTIONS (22)
  - Dysstasia [Recovered/Resolved]
  - Fatigue [Recovering/Resolving]
  - Abdominal pain [Recovered/Resolved]
  - Platelet count decreased [Recovering/Resolving]
  - Haemolysis [Not Recovered/Not Resolved]
  - White blood cell count decreased [Recovering/Resolving]
  - Asthenia [Recovering/Resolving]
  - Haemoglobinuria [Recovered/Resolved]
  - Blood lactate dehydrogenase increased [Recovering/Resolving]
  - Palpitations [Recovered/Resolved]
  - Muscle fatigue [Recovering/Resolving]
  - Decreased appetite [Unknown]
  - Abdominal discomfort [Recovered/Resolved]
  - Oxygen saturation decreased [Unknown]
  - Haemoglobin decreased [Recovering/Resolving]
  - Jaundice [Unknown]
  - Pain in extremity [Recovered/Resolved]
  - Viral infection [Recovering/Resolving]
  - Diarrhoea [Recovering/Resolving]
  - Inappropriate schedule of drug administration [Not Recovered/Not Resolved]
  - Malaise [Not Recovered/Not Resolved]
  - Chromaturia [Recovering/Resolving]

NARRATIVE: CASE EVENT DATE: 201610
